FAERS Safety Report 6699108-X (Version None)
Quarter: 2010Q2

REPORT INFORMATION
  Report Type: 
  Country: None (occurrence: None)
  Receive Date: 20100427
  Receipt Date: 20100114
  Transmission Date: 20101027
  Serious: Yes (Hospitalization)
  Sender: FDA-Public Use
  Company Number: AT-CELGENEUS-009-50794-10010403

PATIENT
  Age: 1 Year
  Sex: Male
  Weight: 9.8 kg

DRUGS (11)
  1. VIDAZA [Suspect]
     Route: 058
     Dates: start: 20091113, end: 20091117
  2. ALDACTONE [Concomitant]
     Indication: VASCULAR INJURY
     Route: 065
     Dates: start: 20091114, end: 20091120
  3. ALDACTONE [Concomitant]
     Indication: PERICARDIAL EFFUSION
  4. CEFUROXIME [Concomitant]
     Indication: INFECTION
     Route: 065
     Dates: start: 20091105, end: 20091120
  5. VANCOMYCIN [Concomitant]
     Indication: INFECTION
     Route: 065
     Dates: start: 20091115, end: 20091120
  6. SOLU-DECORTIN-H [Concomitant]
     Indication: EFFUSION
     Route: 065
     Dates: start: 20091116, end: 20091119
  7. SOLU-DECORTIN-H [Concomitant]
     Indication: VASCULAR INJURY
  8. ONDANSETRON [Concomitant]
     Route: 065
     Dates: start: 20091113, end: 20091120
  9. CECLOR [Concomitant]
     Indication: DRUG USE FOR UNKNOWN INDICATION
     Route: 065
     Dates: start: 20091120, end: 20091123
  10. ULSAL [Concomitant]
     Indication: PROPHYLAXIS
     Route: 065
     Dates: start: 20091116, end: 20091120
  11. SULTANOL [Concomitant]
     Route: 055
     Dates: start: 20091105, end: 20091120

REACTIONS (1)
  - EPIDIDYMITIS [None]
